FAERS Safety Report 5066706-9 (Version None)
Quarter: 2006Q3

REPORT INFORMATION
  Report Type: 
  Country: None (occurrence: None)
  Receive Date: 20060801
  Receipt Date: 20060725
  Transmission Date: 20061208
  Serious: Yes (Hospitalization)
  Sender: FDA-Public Use
  Company Number: 455720

PATIENT
  Age: 52 Year
  Sex: Male

DRUGS (5)
  1. CARVEDILOL [Suspect]
     Indication: MYOCARDIAL INFARCTION
     Dosage: 1.25MG TWICE PER DAY
     Route: 048
     Dates: start: 20040817
  2. WARFARIN SODIUM [Suspect]
     Dosage: 2MG PER DAY
     Route: 048
     Dates: start: 20041012
  3. GASTER [Concomitant]
  4. ASPIRIN [Concomitant]
  5. ACARDI [Concomitant]

REACTIONS (7)
  - CARDIAC FAILURE [None]
  - DYSPNOEA EXERTIONAL [None]
  - LIVER DISORDER [None]
  - PLEURAL EFFUSION [None]
  - PROTEINURIA [None]
  - PULMONARY CONGESTION [None]
  - VENTRICULAR DYSFUNCTION [None]
